FAERS Safety Report 19704511 (Version 2)
Quarter: 2021Q3

REPORT INFORMATION
  Report Type: Spontaneous
  Country: DE (occurrence: DE)
  Receive Date: 20210816
  Receipt Date: 20210823
  Transmission Date: 20211014
  Serious: Yes (Death, Hospitalization)
  Sender: FDA-Public Use
  Company Number: DE-MYLANLABS-2021M1051549

PATIENT
  Age: 5 Year
  Sex: Male
  Weight: 17 kg

DRUGS (8)
  1. BRIVARACETAM [Concomitant]
     Active Substance: BRIVARACETAM
     Indication: LENNOX-GASTAUT SYNDROME
     Dosage: 170 MILLIGRAM, QD (170 MG MILLIGRAM EVERY DAYS 2 SEPARATED DOSES)
     Dates: start: 20190701, end: 20200104
  2. ATENOLOL. [Concomitant]
     Active Substance: ATENOLOL
     Indication: SECONDARY HYPERTENSION
     Dosage: 12.5 MILLIGRAM, QD (12.5 MG MILLIGRAM EVERY DAYS)
     Dates: start: 201410, end: 20200104
  3. FYCOMPA [Concomitant]
     Active Substance: PERAMPANEL
     Indication: LENNOX-GASTAUT SYNDROME
     Dosage: 0.5 MG, QD (0.5 MG EVERY DAYS)
     Dates: start: 20191211, end: 20191217
  4. FLUCONAZOL [Concomitant]
     Active Substance: FLUCONAZOLE
     Indication: INFECTION PROPHYLAXIS
     Dosage: 50 MG, QD (50 MG EVERY DAYS)
     Dates: start: 201410, end: 20200104
  5. CICLOSPORIN [Suspect]
     Active Substance: CYCLOSPORINE
     Indication: GRAFT VERSUS HOST DISEASE
     Dosage: 80 MG, QD (80 MG EVERY DAYS 2 SEPARATED DOSES)
     Route: 048
     Dates: start: 201410, end: 20200104
  6. COTRIMOXAZOL [Concomitant]
     Active Substance: SULFAMETHOXAZOLE\TRIMETHOPRIM
     Indication: INFECTION PROPHYLAXIS
     Dosage: 80 MILLIGRAM, QW (80 MG EVERY WEEKS 2 SEPARATED DOSES)
     Dates: start: 201410, end: 20200104
  7. ENALAPRIL [Concomitant]
     Active Substance: ENALAPRIL
     Indication: SECONDARY HYPERTENSION
     Dosage: 3 MILLIGRAM, QD (3 MG MILLIGRAM EVERY DAYS)
     Dates: start: 201410, end: 20200104
  8. MYCOPHENOLATE MOFETIL. [Suspect]
     Active Substance: MYCOPHENOLATE MOFETIL
     Indication: GRAFT VERSUS HOST DISEASE
     Dosage: 800 MG, QD (800 MG EVERY DAYS 2 SEPARATED DOSES)
     Route: 048
     Dates: start: 201803, end: 20200104

REACTIONS (3)
  - Respiratory failure [Fatal]
  - Pneumonia pseudomonal [Fatal]
  - Bacterial infection [Fatal]

NARRATIVE: CASE EVENT DATE: 20191218
